FAERS Safety Report 9181900 (Version 3)
Quarter: 2013Q3

REPORT INFORMATION
  Report Type: Report from Study
  Country: US (occurrence: US)
  Receive Date: 20130322
  Receipt Date: 20130722
  Transmission Date: 20140515
  Serious: Yes (Hospitalization, Other)
  Sender: FDA-Public Use
  Company Number: US-ABBOTT-13P-163-1064277-00

PATIENT
  Sex: Female
  Weight: 46.76 kg

DRUGS (9)
  1. HUMIRA [Suspect]
     Indication: CROHN^S DISEASE
     Dosage: FIRST DOSE
     Route: 058
     Dates: start: 201211
  2. HUMIRA [Suspect]
     Dosage: SECOND DOSE
  3. HUMIRA [Suspect]
  4. HUMIRA [Suspect]
     Dates: start: 20130205
  5. SEVERAL UNKNOWN SUPPLEMENTS [Concomitant]
     Indication: PRODUCT USED FOR UNKNOWN INDICATION
  6. SEVERAL UNKNOWN MEDICATIONS [Concomitant]
     Indication: PRODUCT USED FOR UNKNOWN INDICATION
     Route: 042
  7. SEVERAL UNKNOWN MEDICATIONS [Concomitant]
     Route: 048
  8. FOLIC ACID [Concomitant]
     Indication: PRODUCT USED FOR UNKNOWN INDICATION
  9. PREDNISONE [Concomitant]
     Indication: PRODUCT USED FOR UNKNOWN INDICATION

REACTIONS (5)
  - Intestinal obstruction [Recovered/Resolved]
  - Appendiceal abscess [Recovered/Resolved]
  - Ovarian abscess [Recovered/Resolved]
  - Crohn^s disease [Unknown]
  - Treatment noncompliance [Unknown]
